FAERS Safety Report 23568784 (Version 1)
Quarter: 2024Q1

REPORT INFORMATION
  Report Type: Spontaneous
  Country: US (occurrence: US)
  Receive Date: 20240227
  Receipt Date: 20240227
  Transmission Date: 20240410
  Serious: Yes (Other)
  Sender: FDA-Public Use
  Company Number: US-CHIESI-2024CHF00969

PATIENT
  Age: 62 Year
  Sex: Male

DRUGS (14)
  1. TOBRAMYCIN [Suspect]
     Active Substance: TOBRAMYCIN
     Indication: Endophthalmitis
     Dosage: 14 MILLIGRAM PER MILLILITRE
     Route: 061
  2. TOBRAMYCIN [Suspect]
     Active Substance: TOBRAMYCIN
     Indication: Burkholderia cepacia complex infection
  3. VANCOMYCIN [Suspect]
     Active Substance: VANCOMYCIN
     Indication: Endophthalmitis
     Dosage: 50 MILLIGRAM PER MILLILITRE
     Route: 061
  4. VANCOMYCIN [Suspect]
     Active Substance: VANCOMYCIN
     Indication: Burkholderia cepacia complex infection
  5. MOXIFLOXACIN [Suspect]
     Active Substance: MOXIFLOXACIN
     Indication: Endophthalmitis
     Route: 061
  6. MOXIFLOXACIN [Suspect]
     Active Substance: MOXIFLOXACIN
     Indication: Burkholderia cepacia complex infection
  7. PREDNISOLONE [Suspect]
     Active Substance: PREDNISOLONE
     Indication: Endophthalmitis
     Dosage: UNK
     Route: 061
  8. PREDNISOLONE [Suspect]
     Active Substance: PREDNISOLONE
     Indication: Burkholderia cepacia complex infection
  9. LEVOFLOXACIN [Suspect]
     Active Substance: LEVOFLOXACIN
     Indication: Endophthalmitis
     Dosage: UNK
     Route: 048
  10. LEVOFLOXACIN [Suspect]
     Active Substance: LEVOFLOXACIN
     Indication: Burkholderia cepacia complex infection
  11. CIPROFLOXACIN [Suspect]
     Active Substance: CIPROFLOXACIN
     Indication: Endophthalmitis
     Dosage: UNK
     Route: 048
  12. CIPROFLOXACIN [Suspect]
     Active Substance: CIPROFLOXACIN
     Indication: Burkholderia cepacia complex infection
  13. PREDNISOLONE [Suspect]
     Active Substance: PREDNISOLONE
     Indication: Endophthalmitis
     Dosage: UNK
     Route: 048
  14. PREDNISOLONE [Suspect]
     Active Substance: PREDNISOLONE
     Indication: Burkholderia cepacia complex infection

REACTIONS (1)
  - Treatment failure [Unknown]
